FAERS Safety Report 13828230 (Version 2)
Quarter: 2017Q3

REPORT INFORMATION
  Report Type: Spontaneous
  Country: CH (occurrence: CH)
  Receive Date: 20170803
  Receipt Date: 20170810
  Transmission Date: 20171127
  Serious: Yes (Death, Other)
  Sender: FDA-Public Use
  Company Number: CH-SUN PHARMACEUTICAL INDUSTRIES LTD-2017RR-146585

PATIENT
  Age: 58 Year
  Sex: Female

DRUGS (7)
  1. CALCIUM FOLINAT [Suspect]
     Active Substance: LEUCOVORIN CALCIUM
     Indication: PANCREATIC CARCINOMA
     Dosage: ON DAY 1, AND THEN REPEATED EVERY 2 WEEKS
     Route: 065
     Dates: start: 2014
  2. NAB-PACLITAXEL [Suspect]
     Active Substance: PACLITAXEL
     Indication: METASTASES TO LIVER
     Dosage: UNK
     Route: 065
     Dates: start: 201506
  3. IRINOTECAN [Suspect]
     Active Substance: IRINOTECAN
     Indication: PANCREATIC CARCINOMA
     Dosage: ON DAY 1, AND THEN REPEATED EVERY 2 WEEKS
     Route: 065
     Dates: start: 2014
  4. FLUOROURACIL. [Suspect]
     Active Substance: FLUOROURACIL
     Indication: PANCREATIC CARCINOMA
     Dosage: ON DAY 1, AND THEN REPEATED EVERY 2 WEEKS; OVER 48 H
     Route: 065
     Dates: start: 2014
  5. FLUOROURACIL. [Suspect]
     Active Substance: FLUOROURACIL
     Dosage: ON DAY 1, AND THEN REPEATED EVERY 2 WEEKS; BOLUS
     Route: 065
     Dates: start: 2014
  6. OXALIPLATIN. [Suspect]
     Active Substance: OXALIPLATIN
     Indication: PANCREATIC CARCINOMA
     Dosage: ON DAY 1, AND THEN REPEATED EVERY 2 WEEKS
     Route: 065
     Dates: start: 2014
  7. GEMCITABINE [Suspect]
     Active Substance: GEMCITABINE\GEMCITABINE HYDROCHLORIDE
     Indication: METASTASES TO LIVER
     Dosage: UNK
     Route: 065
     Dates: start: 201506

REACTIONS (3)
  - Pancreatic carcinoma recurrent [Unknown]
  - Asthenia [Unknown]
  - Disease progression [Fatal]
